FAERS Safety Report 6508526-1 (Version None)
Quarter: 2009Q4

REPORT INFORMATION
  Report Type: 
  Country: None (occurrence: None)
  Receive Date: 20091221
  Receipt Date: 20081113
  Transmission Date: 20100525
  Serious: No
  Sender: FDA-Public Use
  Company Number: US-ASTRAZENECA-2008UW25418

PATIENT
  Age: 60 Year
  Sex: Female
  Weight: 99.8 kg

DRUGS (8)
  1. CRESTOR [Suspect]
     Indication: BLOOD CHOLESTEROL INCREASED
     Dosage: 10 MG
     Route: 048
     Dates: start: 20081001
  2. INSULIN [Concomitant]
  3. MONOPRIL [Concomitant]
  4. NORVASC [Concomitant]
  5. TIMOPTIC [Concomitant]
  6. XALATAN [Concomitant]
  7. METANX [Concomitant]
  8. ARAVA [Concomitant]

REACTIONS (3)
  - HEADACHE [None]
  - MUSCLE SPASMS [None]
  - NECK PAIN [None]
